FAERS Safety Report 10083242 (Version 1)
Quarter: 2014Q2

REPORT INFORMATION
  Report Type: Spontaneous
  Country: US (occurrence: None)
  Receive Date: 20140415
  Receipt Date: 20140415
  Transmission Date: 20141212
  Serious: Yes (Other)
  Sender: FDA-Public Use
  Company Number: 2014P1002949

PATIENT
  Age: 56 Year
  Sex: Female

DRUGS (6)
  1. DEXAMETHASONE [Suspect]
     Indication: MUSCULOSKELETAL PAIN
  2. DEXAMETHASONE [Suspect]
     Indication: NECK PAIN
  3. TRIAMCINOLONE [Suspect]
     Indication: MUSCULOSKELETAL PAIN
  4. TRIAMCINOLONE [Suspect]
     Indication: NECK PAIN
  5. UNSPECIFIED STEROID [Suspect]
     Indication: MUSCULOSKELETAL PAIN
  6. UNSPECIFIED STEROID [Suspect]
     Indication: NECK PAIN

REACTIONS (2)
  - Glycosylated haemoglobin increased [None]
  - Pancreatic disorder [None]
